FAERS Safety Report 19045505 (Version 1)
Quarter: 2021Q1

REPORT INFORMATION
  Report Type: Spontaneous
  Country: US (occurrence: US)
  Receive Date: 20210323
  Receipt Date: 20210323
  Transmission Date: 20210420
  Serious: Yes (Other)
  Sender: FDA-Public Use
  Company Number: US-GLAXOSMITHKLINE-US2021GSK065542

PATIENT
  Sex: Female

DRUGS (8)
  1. ZANTAC [Suspect]
     Active Substance: RANITIDINE HYDROCHLORIDE
     Indication: GASTROOESOPHAGEAL REFLUX DISEASE
  2. ZANTAC [Suspect]
     Active Substance: RANITIDINE HYDROCHLORIDE
     Indication: HELICOBACTER INFECTION
     Dosage: 150 MG, QD
     Route: 065
     Dates: start: 200205, end: 202004
  3. ZANTAC [Suspect]
     Active Substance: RANITIDINE HYDROCHLORIDE
     Indication: HELICOBACTER INFECTION
     Dosage: 150 MG, QD
     Route: 065
     Dates: start: 200205, end: 202004
  4. ZANTAC [Suspect]
     Active Substance: RANITIDINE HYDROCHLORIDE
     Indication: GASTROOESOPHAGEAL REFLUX DISEASE
  5. RANITIDINE CAPSULE [Suspect]
     Active Substance: RANITIDINE
     Indication: GASTROOESOPHAGEAL REFLUX DISEASE
  6. ZANTAC [Suspect]
     Active Substance: RANITIDINE HYDROCHLORIDE
     Indication: GASTROOESOPHAGEAL REFLUX DISEASE
  7. ZANTAC [Suspect]
     Active Substance: RANITIDINE HYDROCHLORIDE
     Indication: HELICOBACTER INFECTION
     Dosage: 150 MG, QD
     Route: 065
     Dates: start: 200205, end: 202004
  8. RANITIDINE CAPSULE [Suspect]
     Active Substance: RANITIDINE
     Indication: HELICOBACTER INFECTION
     Dosage: 150 MG, QD
     Route: 065
     Dates: start: 200205, end: 202004

REACTIONS (1)
  - Renal cancer [Unknown]
